FAERS Safety Report 23757216 (Version 1)
Quarter: 2024Q2

REPORT INFORMATION
  Report Type: Spontaneous
  Country: CN (occurrence: CN)
  Receive Date: 20240418
  Receipt Date: 20240418
  Transmission Date: 20240715
  Serious: Yes (Other)
  Sender: FDA-Public Use
  Company Number: CN-OTSUKA-2024_010846

PATIENT
  Age: 69 Year
  Sex: Female
  Weight: 41 kg

DRUGS (2)
  1. ABILIFY [Suspect]
     Active Substance: ARIPIPRAZOLE
     Indication: Schizophrenia
     Dosage: 5 MG, BID
     Route: 048
     Dates: start: 202303, end: 20240408
  2. ABILIFY [Suspect]
     Active Substance: ARIPIPRAZOLE
     Dosage: 2.5 MG, BID
     Route: 048

REACTIONS (8)
  - Pneumonia [Unknown]
  - Bronchiectasis [Unknown]
  - Schizophrenia [Unknown]
  - Osteoporosis [Unknown]
  - Sleep disorder [Unknown]
  - Tremor [Recovered/Resolved]
  - Extrapyramidal disorder [Unknown]
  - Inappropriate schedule of product administration [Unknown]

NARRATIVE: CASE EVENT DATE: 20240405
